FAERS Safety Report 22059678 (Version 1)
Quarter: 2023Q1

REPORT INFORMATION
  Report Type: Spontaneous
  Country: US (occurrence: US)
  Receive Date: 20230303
  Receipt Date: 20230303
  Transmission Date: 20230418
  Serious: No
  Sender: FDA-Public Use
  Company Number: US-SA-SAC20230303000148

PATIENT
  Sex: Female

DRUGS (1)
  1. DUPIXENT [Suspect]
     Active Substance: DUPILUMAB
     Indication: Dermatitis allergic
     Dosage: 300 MG EVERY OTHER WEEK
     Route: 058
     Dates: start: 20211123

REACTIONS (3)
  - Headache [Not Recovered/Not Resolved]
  - Toothache [Unknown]
  - Neuralgia [Unknown]
